FAERS Safety Report 4717236-2 (Version None)
Quarter: 2005Q3

REPORT INFORMATION
  Report Type: 
  Country: None (occurrence: None)
  Receive Date: 20050715
  Receipt Date: 20050704
  Transmission Date: 20060218
  Serious: Yes (Hospitalization)
  Sender: FDA-Public Use
  Company Number: 2005096400

PATIENT
  Age: 79 Year
  Sex: Male
  Weight: 65 kg

DRUGS (1)
  1. VALDECOXIB [Suspect]
     Indication: BACK PAIN
     Dosage: 40 MG (40 MG, 1 IN 1 D); ORAL
     Route: 048
     Dates: start: 20041101, end: 20041101

REACTIONS (1)
  - STEVENS-JOHNSON SYNDROME [None]
